FAERS Safety Report 6508484-X (Version None)
Quarter: 2009Q4

REPORT INFORMATION
  Report Type: 
  Country: None (occurrence: None)
  Receive Date: 20091221
  Receipt Date: 20081126
  Transmission Date: 20100525
  Serious: No
  Sender: FDA-Public Use
  Company Number: US-ASTRAZENECA-2008UW26536

PATIENT
  Age: 63 Year
  Sex: Male
  Weight: 78.5 kg

DRUGS (6)
  1. CRESTOR [Suspect]
     Indication: BLOOD CHOLESTEROL INCREASED
     Dosage: UNKNOWN
     Route: 048
     Dates: start: 20081112, end: 20081124
  2. CRESTOR [Suspect]
     Dosage: UNKNOWN
     Route: 048
     Dates: start: 20081126
  3. TRICOR [Concomitant]
  4. FENTANYL [Concomitant]
  5. METOPROLOL TARTRATE [Concomitant]
  6. PLAVIX [Concomitant]

REACTIONS (3)
  - ASTHENIA [None]
  - FEELING HOT [None]
  - PARAESTHESIA [None]
